FAERS Safety Report 8909021 (Version 1)
Quarter: 2012Q4

REPORT INFORMATION
  Report Type: 
  Country: US (occurrence: US)
  Receive Date: 20121113
  Receipt Date: 20121113
  Transmission Date: 20130627
  Serious: No
  Sender: FDA-Public Use
  Company Number: US-AMGEN-USASP2012011617

PATIENT
  Sex: Female

DRUGS (7)
  1. ENBREL [Suspect]
     Indication: PRODUCT USED FOR UNKNOWN INDICATION
     Dosage: 50 mg, qwk
     Route: 058
  2. MAXALT                             /01406501/ [Concomitant]
     Dosage: 5 mg, UNK
  3. MELOXICAM [Concomitant]
     Dosage: 15 mg, UNK
  4. METHOTREXATE [Concomitant]
     Dosage: 2.5 mg, UNK
  5. IBUPROFEN [Concomitant]
     Dosage: 200 mg, UNK
  6. FOLIC ACID [Concomitant]
  7. HYDROCODONE W/HOMATROPINE [Concomitant]

REACTIONS (1)
  - Tooth infection [Unknown]
